FAERS Safety Report 8004888-7 (Version None)
Quarter: 2011Q4

REPORT INFORMATION
  Report Type: 
  Country: None (occurrence: None)
  Receive Date: 20111223
  Receipt Date: 20111223
  Transmission Date: 20120403
  Serious: Yes (Other)
  Sender: FDA-Public Use
  Company Number: None

PATIENT
  Age: 57 Year
  Sex: Male
  Weight: 117.93 kg

DRUGS (1)
  1. CETIRIZINE HCL [Suspect]
     Indication: RHINORRHOEA
     Dosage: 10MG
     Route: 048
     Dates: start: 20111215, end: 20111216

REACTIONS (2)
  - VENTRICULAR EXTRASYSTOLES [None]
  - HEART RATE IRREGULAR [None]
